FAERS Safety Report 6495299-4 (Version None)
Quarter: 2009Q4

REPORT INFORMATION
  Report Type: 
  Country: None (occurrence: None)
  Receive Date: 20091214
  Receipt Date: 20090526
  Transmission Date: 20100525
  Serious: No
  Sender: FDA-Public Use
  Company Number: US-BRISTOL-MYERS SQUIBB COMPANY-14637532

PATIENT
  Age: 2 Decade
  Sex: Female

DRUGS (1)
  1. ABILIFY [Suspect]
     Dosage: DRUG WAS STOPPED AND RESTARTED IN UNK DATE, AGAIN DISCONTINUED

REACTIONS (2)
  - PANIC ATTACK [None]
  - SWELLING [None]
